FAERS Safety Report 16197840 (Version 1)
Quarter: 2019Q2

REPORT INFORMATION
  Report Type: Spontaneous
  Country: US (occurrence: US)
  Receive Date: 20190414
  Receipt Date: 20190414
  Transmission Date: 20190711
  Serious: Yes (Other)
  Sender: FDA-Public Use
  Company Number: None

PATIENT
  Age: 47 Year
  Sex: Female
  Weight: 86.85 kg

DRUGS (7)
  1. AIMOVIG [Suspect]
     Active Substance: ERENUMAB-AOOE
     Indication: MIGRAINE
     Dates: start: 20180818, end: 20190122
  2. SUMATRIPTAN. [Concomitant]
     Active Substance: SUMATRIPTAN
  3. SIMVISTATIN [Concomitant]
     Active Substance: SIMVASTATIN
  4. AIMOVIG [Suspect]
     Active Substance: ERENUMAB-AOOE
  5. IMITREX [Concomitant]
     Active Substance: SUMATRIPTAN SUCCINATE
  6. OMEPRAZOLE. [Concomitant]
     Active Substance: OMEPRAZOLE
  7. GNC HIGH POTENCY MULTIVITAMIN [Concomitant]

REACTIONS (4)
  - Alopecia [None]
  - Constipation [None]
  - Flatulence [None]
  - Gastrointestinal pain [None]

NARRATIVE: CASE EVENT DATE: 20190101
